FAERS Safety Report 9474023 (Version 1)
Quarter: 2013Q3

REPORT INFORMATION
  Report Type: Spontaneous
  Country: US (occurrence: US)
  Receive Date: 20130823
  Receipt Date: 20130823
  Transmission Date: 20140515
  Serious: No
  Sender: FDA-Public Use
  Company Number: US-009507513-1308USA010037

PATIENT
  Sex: Female
  Weight: 58.96 kg

DRUGS (1)
  1. NUVARING [Suspect]
     Indication: CONTRACEPTION
     Dosage: UNK
     Route: 067
     Dates: start: 201306

REACTIONS (6)
  - Dizziness [Unknown]
  - Migraine [Unknown]
  - Breast discomfort [Unknown]
  - Depression [Unknown]
  - Pollakiuria [Unknown]
  - Vaginal discharge [Unknown]
